FAERS Safety Report 9256959 (Version 4)
Quarter: 2014Q2

REPORT INFORMATION
  Report Type: Spontaneous
  Country: US (occurrence: US)
  Receive Date: 20130426
  Receipt Date: 20140528
  Transmission Date: 20141212
  Serious: Yes (Hospitalization, Disabling)
  Sender: FDA-Public Use
  Company Number: US-ASTRAZENECA-2013SE27342

PATIENT
  Age: 67 Year
  Sex: Female
  Weight: 83.5 kg

DRUGS (21)
  1. NEXIUM [Suspect]
     Indication: GASTROOESOPHAGEAL REFLUX DISEASE
     Dosage: 1-2 TIMES DAILY
     Route: 048
     Dates: start: 2001, end: 2004
  2. NEXIUM [Suspect]
     Indication: GASTROOESOPHAGEAL REFLUX DISEASE
     Route: 048
     Dates: start: 20020219
  3. PRILOSEC [Suspect]
     Indication: GASTROOESOPHAGEAL REFLUX DISEASE
     Route: 048
     Dates: start: 2004, end: 2012
  4. PRILOSEC [Suspect]
     Indication: GASTROOESOPHAGEAL REFLUX DISEASE
     Route: 048
     Dates: start: 20110526
  5. TAGAMET [Concomitant]
     Dosage: OTC  TWO TIMES PER DAY
     Dates: start: 2011
  6. POTASSIUM [Concomitant]
     Indication: VITAMIN SUPPLEMENTATION
  7. HYDROCODONE [Concomitant]
  8. PEPTO BISMOL OTC [Concomitant]
  9. AMITRIPTYLINE HCL [Concomitant]
     Route: 048
     Dates: start: 20030820
  10. PYRIDIUM [Concomitant]
     Dates: start: 20030621
  11. ARTHROTEC [Concomitant]
     Dates: start: 20030624
  12. PEPCID [Concomitant]
     Route: 048
     Dates: start: 20060412
  13. MEVACOR [Concomitant]
     Route: 048
     Dates: start: 20061125
  14. DITROPAN [Concomitant]
     Route: 048
     Dates: start: 20061127
  15. PANTOPRAZOLE [Concomitant]
     Route: 048
     Dates: start: 20061125
  16. MIRAPEX [Concomitant]
     Route: 048
     Dates: start: 20061124
  17. LYRICA [Concomitant]
     Route: 048
     Dates: start: 20061124
  18. AVANDIA [Concomitant]
     Route: 048
     Dates: start: 20060613
  19. TYLENOL [Concomitant]
     Route: 048
     Dates: start: 20061124
  20. PROMETHAZINE [Concomitant]
     Route: 048
     Dates: start: 20061125
  21. AMBIEN [Concomitant]
     Route: 048
     Dates: start: 20061125

REACTIONS (14)
  - Hip fracture [Unknown]
  - Back injury [Unknown]
  - Osteoporosis [Unknown]
  - Parkinson^s disease [Unknown]
  - Fall [Unknown]
  - Calcium deficiency [Unknown]
  - Arthritis [Unknown]
  - Cataract [Unknown]
  - Lymphoedema [Unknown]
  - Osteoarthritis [Unknown]
  - Osteopenia [Unknown]
  - Spinal osteoarthritis [Unknown]
  - Arthropathy [Unknown]
  - Depression [Unknown]
